FAERS Safety Report 12156102 (Version 2)
Quarter: 2016Q2

REPORT INFORMATION
  Report Type: Spontaneous
  Country: US (occurrence: US)
  Receive Date: 20160307
  Receipt Date: 20160411
  Transmission Date: 20160815
  Serious: No
  Sender: FDA-Public Use
  Company Number: US-BAYER-2016-043895

PATIENT
  Age: 75 Year
  Sex: Female

DRUGS (1)
  1. CLIMARA [Suspect]
     Active Substance: ESTRADIOL
     Dosage: 0.05 MG, UNK
     Route: 062
     Dates: start: 20160215

REACTIONS (3)
  - Application site reaction [None]
  - Application site erythema [Not Recovered/Not Resolved]
  - Application site erythema [None]

NARRATIVE: CASE EVENT DATE: 20160222
